FAERS Safety Report 9166165 (Version 3)
Quarter: 2013Q2

REPORT INFORMATION
  Report Type: Spontaneous
  Country: GB (occurrence: None)
  Receive Date: 20130311
  Receipt Date: 20130620
  Transmission Date: 20140414
  Serious: Yes (Other)
  Sender: FDA-Public Use
  Company Number: AUR-APL-2013-01403

PATIENT
  Age: 44 Year
  Sex: Female

DRUGS (3)
  1. RIBAVIRIN [Suspect]
     Indication: HEPATITIS C
     Route: 048
     Dates: start: 20121016
  2. TELAPREVIR [Suspect]
     Indication: HEPATITIS C
     Route: 048
     Dates: start: 20121016
  3. INTERFERON [Suspect]
     Indication: HEPATITIS C
     Route: 058
     Dates: start: 20121016

REACTIONS (4)
  - Nausea [None]
  - Anaemia [None]
  - Fatigue [None]
  - Malaise [None]
